FAERS Safety Report 9070658 (Version 1)
Quarter: 2013Q1

REPORT INFORMATION
  Report Type: Spontaneous
  Country: US (occurrence: US)
  Receive Date: 20130206
  Receipt Date: 20130206
  Transmission Date: 20140127
  Serious: No
  Sender: FDA-Public Use
  Company Number: US-ALLERGAN-1204580US

PATIENT
  Age: 59 Year
  Sex: Female

DRUGS (9)
  1. RESTASIS? [Suspect]
     Indication: DRY EYE
     Dosage: 2 GTT, BID
     Route: 047
     Dates: start: 201202
  2. REFRESH PM                         /00880201/ [Concomitant]
     Indication: DRY EYE
     Dosage: UNK
     Route: 047
  3. THERATEARS                         /00007001/ [Concomitant]
     Indication: DRY EYE
     Dosage: UNK
  4. ATACAND                            /01349502/ [Concomitant]
     Indication: HYPERTENSION
     Dosage: 32 MG, QD
     Route: 048
  5. HYDROCHLOROTHIAZIDE [Concomitant]
     Indication: HYPERTENSION
     Dosage: 25 MG, QD
     Route: 048
  6. SIMVASTATIN [Concomitant]
     Indication: BLOOD CHOLESTEROL INCREASED
     Dosage: 10 MG, QD
     Route: 048
  7. GABAPENTIN [Concomitant]
     Indication: PRODUCT USED FOR UNKNOWN INDICATION
     Dosage: 30 MG, PRN
     Route: 048
  8. PROMETRIUM [Concomitant]
     Indication: HORMONE REPLACEMENT THERAPY
     Dosage: UNK
  9. ESTRADIOL [Concomitant]
     Indication: HORMONE REPLACEMENT THERAPY
     Dosage: 2 MG, QD
     Route: 048

REACTIONS (3)
  - Vulvovaginal mycotic infection [Recovered/Resolved]
  - Drug ineffective [Unknown]
  - Foreign body sensation in eyes [Not Recovered/Not Resolved]
